FAERS Safety Report 9892467 (Version 1)
Quarter: 2014Q1

REPORT INFORMATION
  Report Type: Spontaneous
  Country: US (occurrence: US)
  Receive Date: 20140212
  Receipt Date: 20140212
  Transmission Date: 20141002
  Serious: No
  Sender: FDA-Public Use
  Company Number: US-ENDO PHARMACEUTICALS INC.-MONT20130015

PATIENT
  Age: 71 Year
  Sex: Female

DRUGS (3)
  1. MONTELUKAST SODIUM TABLETS 10MG [Suspect]
     Indication: ASTHMA
     Route: 048
     Dates: start: 201309
  2. MONTELUKAST SODIUM TABLETS 10MG [Suspect]
     Indication: HYPERSENSITIVITY
  3. ALPRAZOLAM IR TABLETS 0.25MG [Suspect]
     Indication: PRODUCT USED FOR UNKNOWN INDICATION
     Dosage: 0.25 MG
     Route: 048
     Dates: start: 201309

REACTIONS (2)
  - Coeliac disease [Not Recovered/Not Resolved]
  - Condition aggravated [Not Recovered/Not Resolved]
